FAERS Safety Report 7580156-2 (Version None)
Quarter: 2011Q2

REPORT INFORMATION
  Report Type: 
  Country: None (occurrence: None)
  Receive Date: 20110629
  Receipt Date: 20110610
  Transmission Date: 20111010
  Serious: Yes (Hospitalization, Other)
  Sender: FDA-Public Use
  Company Number: US-BAYER-2011-024483

PATIENT
  Age: 19 Year
  Sex: Female
  Weight: 86.168 kg

DRUGS (4)
  1. ACETAMINOPHEN [Concomitant]
     Dosage: UNK UNK, PRN
  2. DIPHENHYDRAMIN HCL [Concomitant]
     Dosage: UNK UNK, PRN
  3. PRISTIQ [Concomitant]
     Dosage: 50 MG, QD
  4. YAZ [Suspect]
     Indication: PRODUCT USED FOR UNKNOWN INDICATION
     Dosage: UNK
     Dates: start: 20050101, end: 20090101

REACTIONS (6)
  - HEART RATE IRREGULAR [None]
  - PULMONARY EMBOLISM [None]
  - PAIN [None]
  - DEEP VEIN THROMBOSIS [None]
  - INJURY [None]
  - SYSTEMIC LUPUS ERYTHEMATOSUS [None]
